FAERS Safety Report 11649872 (Version 1)
Quarter: 2015Q4

REPORT INFORMATION
  Report Type: Spontaneous
  Country: US (occurrence: US)
  Receive Date: 20151021
  Receipt Date: 20151021
  Transmission Date: 20160304
  Serious: Yes (Other)
  Sender: FDA-Public Use
  Company Number: US-JNJFOC-20151014238

PATIENT
  Age: 65 Year
  Sex: Male
  Weight: 114.29 kg

DRUGS (2)
  1. ADEMPAS [Suspect]
     Active Substance: RIOCIGUAT
     Indication: PULMONARY ARTERIAL HYPERTENSION
     Route: 048
     Dates: start: 20141106
  2. XARELTO [Suspect]
     Active Substance: RIVAROXABAN
     Indication: PRODUCT USED FOR UNKNOWN INDICATION
     Route: 048

REACTIONS (11)
  - Skin ulcer [Unknown]
  - Cardiovascular disorder [Unknown]
  - Thrombosis [Unknown]
  - Dyspnoea exertional [Unknown]
  - Skin discolouration [Unknown]
  - Dyspnoea [Unknown]
  - Headache [Unknown]
  - Irritability [Unknown]
  - Diarrhoea [Unknown]
  - Nausea [Unknown]
  - Peripheral swelling [Unknown]

NARRATIVE: CASE EVENT DATE: 20150116
